FAERS Safety Report 8495704 (Version 2)
Quarter: 2014Q2

REPORT INFORMATION
  Report Type: Spontaneous
  Country: JP (occurrence: JP)
  Receive Date: 20120405
  Receipt Date: 20140416
  Transmission Date: 20141212
  Serious: Yes (Disabling, Other)
  Sender: FDA-Public Use
  Company Number: JP-ROCHE-1052304

PATIENT
  Age: 74 Year
  Sex: Female

DRUGS (1)
  1. PEGASYS [Suspect]
     Indication: PRODUCT USED FOR UNKNOWN INDICATION
     Route: 058
     Dates: start: 201009, end: 201010

REACTIONS (4)
  - Disability [Unknown]
  - Neutropenia [Unknown]
  - Sepsis [Unknown]
  - Cerebral infarction [Unknown]
